FAERS Safety Report 9238619 (Version 1)
Quarter: 2013Q2

REPORT INFORMATION
  Report Type: Spontaneous
  Country: US (occurrence: None)
  Receive Date: 20130417
  Receipt Date: 20130417
  Transmission Date: 20140414
  Serious: Yes (Hospitalization, Other)
  Sender: FDA-Public Use
  Company Number: None

PATIENT
  Age: 65 Year
  Sex: Female
  Weight: 81 kg

DRUGS (1)
  1. CEFEPIME [Suspect]
     Indication: PNEUMONIA
     Route: 041
     Dates: start: 20130206, end: 20130212

REACTIONS (1)
  - Status epilepticus [None]
